FAERS Safety Report 16871138 (Version 2)
Quarter: 2019Q4

REPORT INFORMATION
  Report Type: Report from Study
  Country: None (occurrence: BR)
  Receive Date: 20190930
  Receipt Date: 20191002
  Transmission Date: 20200122
  Serious: Yes (Other)
  Sender: FDA-Public Use
  Company Number: BR-ABBVIE-19K-020-2943351-00

PATIENT
  Sex: Female
  Weight: 65 kg

DRUGS (3)
  1. TYLEX [Concomitant]
     Indication: PAIN
  2. HUMIRA [Suspect]
     Active Substance: ADALIMUMAB
     Indication: PSORIATIC ARTHROPATHY
     Route: 058
     Dates: start: 20190802
  3. MAXSULID [Concomitant]
     Active Substance: NIMESULIDE
     Indication: INTERVERTEBRAL DISC PROTRUSION

REACTIONS (3)
  - Nail growth abnormal [Unknown]
  - Therapeutic product effect incomplete [Unknown]
  - Limb mass [Unknown]

NARRATIVE: CASE EVENT DATE: 2019
